FAERS Safety Report 21762105 (Version 1)
Quarter: 2022Q4

REPORT INFORMATION
  Report Type: Spontaneous
  Country: RU (occurrence: None)
  Receive Date: 20221221
  Receipt Date: 20221221
  Transmission Date: 20230112
  Serious: Yes (Hospitalization)
  Sender: FDA-Public Use
  Company Number: 2022A410527

PATIENT

DRUGS (1)
  1. PULMICORT TURBUHALER [Suspect]
     Active Substance: BUDESONIDE
     Dosage: DOSE OF 0.5 MG/ML, 2ML, DOSE USED.
     Route: 055

REACTIONS (2)
  - Musculoskeletal disorder [Unknown]
  - Product contamination physical [Unknown]
